FAERS Safety Report 26087268 (Version 1)
Quarter: 2025Q4

REPORT INFORMATION
  Report Type: Spontaneous
  Country: US (occurrence: None)
  Receive Date: 20251124
  Receipt Date: 20251124
  Transmission Date: 20260117
  Serious: Yes (Hospitalization)
  Sender: FDA-CTU
  Company Number: None

PATIENT
  Age: 53 Year
  Sex: Female

DRUGS (12)
  1. MYCOPHENOLIC ACID [Suspect]
     Active Substance: MYCOPHENOLIC ACID
     Indication: Renal transplant
     Dosage: 720  MG BID ORAL ?
     Route: 048
     Dates: start: 20230801
  2. TACROLIMUS [Suspect]
     Active Substance: TACROLIMUS
     Indication: Renal transplant
     Dosage: 25 MG BID ORAL ?
  3. OZEMPIC [Concomitant]
     Active Substance: SEMAGLUTIDE
  4. benadryl 25mg [Concomitant]
  5. biotin 1000mcg [Concomitant]
  6. AMLODIPINE [Concomitant]
     Active Substance: AMLODIPINE BESYLATE
  7. multivitamin tablet [Concomitant]
  8. PREDNISONE [Concomitant]
     Active Substance: PREDNISONE
  9. ZOLPIDEM [Concomitant]
     Active Substance: ZOLPIDEM TARTRATE
  10. rosuvatatin 10mg [Concomitant]
  11. LOSARTAN [Concomitant]
     Active Substance: LOSARTAN
  12. ALLOPURINOL [Concomitant]
     Active Substance: ALLOPURINOL

REACTIONS (2)
  - Complications of transplanted kidney [None]
  - Nephrolithiasis [None]

NARRATIVE: CASE EVENT DATE: 20251031
